FAERS Safety Report 7137130-X (Version None)
Quarter: 2010Q4

REPORT INFORMATION
  Report Type: 
  Country: None (occurrence: None)
  Receive Date: 20101206
  Receipt Date: 20070601
  Transmission Date: 20110411
  Serious: Yes (Death)
  Sender: FDA-Public Use
  Company Number: US-ACTELION-A-US2007-16299

PATIENT

DRUGS (16)
  1. ILOPROST INHALATION SOLUTION 5UG US [Suspect]
     Indication: PULMONARY HYPERTENSION
     Dosage: 5 UG, 6XDAY
     Route: 055
     Dates: start: 20060104, end: 20070509
  2. REVATIO [Concomitant]
     Indication: PULMONARY HYPERTENSION
  3. BONIVA [Concomitant]
  4. XANAX [Concomitant]
  5. PREDNISONE [Concomitant]
  6. BACTRIM [Concomitant]
  7. PRAVACHOL [Concomitant]
  8. LASIX [Concomitant]
  9. NORVASC [Concomitant]
  10. DIOVAN [Concomitant]
  11. KLOR-CON [Concomitant]
  12. PROZAC [Concomitant]
  13. NEXIUM [Concomitant]
  14. COUMADIN [Concomitant]
  15. IMURAN [Concomitant]
  16. MS CONTIN [Concomitant]

REACTIONS (3)
  - CONDITION AGGRAVATED [None]
  - DEATH [None]
  - DYSPNOEA [None]
